FAERS Safety Report 20822070 (Version 2)
Quarter: 2025Q3

REPORT INFORMATION
  Report Type: Spontaneous
  Country: US (occurrence: US)
  Receive Date: 20220512
  Receipt Date: 20250717
  Transmission Date: 20251021
  Serious: No
  Sender: PFIZER
  Company Number: US-PFIZER INC-2017527242

PATIENT
  Age: 74 Year
  Sex: Female

DRUGS (1)
  1. XELJANZ XR [Suspect]
     Active Substance: TOFACITINIB CITRATE
     Indication: Immunosuppression
     Dosage: 11 MG, 1X/DAY (QD)
     Route: 048

REACTIONS (2)
  - Daydreaming [Unknown]
  - Product use in unapproved indication [Unknown]
